FAERS Safety Report 15748983 (Version 10)
Quarter: 2019Q1

REPORT INFORMATION
  Report Type: Report from Study
  Country: CN (occurrence: CN)
  Receive Date: 20181221
  Receipt Date: 20190226
  Transmission Date: 20190417
  Serious: Yes (Hospitalization)
  Sender: FDA-Public Use
  Company Number: CN-ROCHE-2233392

PATIENT
  Age: 54 Year
  Sex: Male
  Weight: 67 kg

DRUGS (9)
  1. ATEZOLIZUMAB. [Suspect]
     Active Substance: ATEZOLIZUMAB
     Indication: NON-SMALL CELL LUNG CANCER METASTATIC
     Dosage: DATE OF MOST RECENT DOSE OF ATEZOLIZUMAB PRIOR TO SAE/AE ONSET 23/NOV/2018 AT 11:50
     Route: 042
     Dates: start: 20181031
  2. COMPOUND AMINO ACID (20AA) [Concomitant]
     Route: 042
     Dates: start: 20181229, end: 20181229
  3. OMEPRAZOLE SODIUM [Concomitant]
     Active Substance: OMEPRAZOLE SODIUM
     Indication: PROPHYLAXIS
     Route: 042
     Dates: start: 20181229, end: 20190103
  4. VITAMIN B6 [Concomitant]
     Active Substance: PYRIDOXINE HYDROCHLORIDE
     Dosage: NUTRITIONAL SUPPLEMENTS
     Route: 042
     Dates: start: 20181229, end: 20181229
  5. LOXOPROFEN [Concomitant]
     Active Substance: LOXOPROFEN
     Route: 048
     Dates: start: 20181031
  6. METHYLPREDNISOLONE SODIUM SUCCINATE. [Concomitant]
     Active Substance: METHYLPREDNISOLONE SODIUM SUCCINATE
     Indication: NEPHRITIS
     Route: 042
     Dates: start: 20181220
  7. CODEINE PHOSPHATE [Concomitant]
     Active Substance: CODEINE PHOSPHATE
     Route: 048
     Dates: start: 20181220
  8. METHYLPREDNISOLONE. [Concomitant]
     Active Substance: METHYLPREDNISOLONE
     Indication: NEPHRITIS
     Route: 048
     Dates: start: 20181220
  9. CARBAZOCHROME [Concomitant]
     Active Substance: CARBAZOCHROME
     Route: 048
     Dates: end: 20181106

REACTIONS (2)
  - Haemoptysis [Recovered/Resolved]
  - Bronchial haemorrhage [Recovered/Resolved]

NARRATIVE: CASE EVENT DATE: 20181216
